FAERS Safety Report 9265661 (Version 4)
Quarter: 2014Q2

REPORT INFORMATION
  Report Type: Spontaneous
  Country: BR (occurrence: BR)
  Receive Date: 20130501
  Receipt Date: 20140423
  Transmission Date: 20141212
  Serious: Yes (Other)
  Sender: FDA-Public Use
  Company Number: BR-PFIZER INC-2013134693

PATIENT
  Age: 54 Year
  Sex: Female

DRUGS (3)
  1. LYRICA [Suspect]
     Indication: SPINAL PAIN
     Dosage: 2 TABLETS DAILY
     Dates: start: 20130414
  2. LYRICA [Suspect]
     Dosage: 1 DF, 1X/DAY
  3. RIVOTRIL [Concomitant]
     Dosage: UNK

REACTIONS (10)
  - Loss of control of legs [Unknown]
  - Gait disturbance [Unknown]
  - Dysstasia [Unknown]
  - Hypoaesthesia [Recovered/Resolved]
  - Dysarthria [Unknown]
  - Somnolence [Not Recovered/Not Resolved]
  - Sedation [Unknown]
  - Visual impairment [Unknown]
  - Sluggishness [Not Recovered/Not Resolved]
  - Dizziness [Unknown]
